FAERS Safety Report 10492646 (Version 1)
Quarter: 2014Q4

REPORT INFORMATION
  Report Type: Spontaneous
  Country: US (occurrence: US)
  Receive Date: 20141002
  Receipt Date: 20141002
  Transmission Date: 20150528
  Serious: No
  Sender: FDA-Public Use
  Company Number: US-GLAXOSMITHKLINE-A1073523A

PATIENT
  Age: 59 Year
  Sex: Female

DRUGS (6)
  1. ASTHMA MEDICATION [Concomitant]
     Active Substance: UNSPECIFIED INGREDIENT
  2. BLOOD PRESSURE MEDICATION [Concomitant]
     Active Substance: UNSPECIFIED INGREDIENT
  3. ARTHRITIS MEDICATION [Concomitant]
  4. UNKNOWN [Concomitant]
     Active Substance: UNSPECIFIED INGREDIENT
  5. ADVAIR HFA [Suspect]
     Active Substance: FLUTICASONE PROPIONATE\SALMETEROL XINAFOATE
     Indication: PRODUCT USED FOR UNKNOWN INDICATION
     Dates: start: 20101230
  6. DIABETES MEDICATION [Concomitant]
     Active Substance: UNSPECIFIED INGREDIENT

REACTIONS (1)
  - Dyspnoea [Unknown]
